FAERS Safety Report 8299873-4 (Version None)
Quarter: 2012Q2

REPORT INFORMATION
  Report Type: 
  Country: None (occurrence: None)
  Receive Date: 20120419
  Receipt Date: 20120329
  Transmission Date: 20120825
  Serious: Yes (Hospitalization)
  Sender: FDA-Public Use
  Company Number: US-BAXTER-2012BAX000913

PATIENT
  Sex: Male

DRUGS (6)
  1. DIANEAL [Suspect]
     Route: 033
  2. DIANEAL LOW CALCIUM W/ DEXTROSE 1.5% [Suspect]
     Indication: PERITONEAL DIALYSIS
     Route: 033
     Dates: start: 20060130
  3. DIANEAL LOW CALCIUM W/ DEXTROSE 1.5% [Suspect]
     Route: 033
  4. DIANEAL [Suspect]
     Indication: PERITONEAL DIALYSIS
     Route: 033
     Dates: start: 20060130
  5. DIANEAL [Suspect]
     Route: 033
  6. DIANEAL [Suspect]
     Route: 033
     Dates: start: 20060130

REACTIONS (4)
  - RESPIRATORY FAILURE [None]
  - PLEURAL EFFUSION [None]
  - HYPERTENSION [None]
  - MALAISE [None]
